FAERS Safety Report 19897069 (Version 2)
Quarter: 2021Q4

REPORT INFORMATION
  Report Type: Report from Study
  Country: AU (occurrence: AU)
  Receive Date: 20210930
  Receipt Date: 20211008
  Transmission Date: 20220303
  Serious: Yes (Hospitalization)
  Sender: FDA-Public Use
  Company Number: AU-BRISTOL-MYERS SQUIBB COMPANY-BMS-2021-097825

PATIENT
  Age: 64 Year
  Sex: Male

DRUGS (18)
  1. NIVOLUMAB [Suspect]
     Active Substance: NIVOLUMAB
     Indication: Malignant melanoma
     Dosage: 108 MILLIGRAM
     Route: 042
     Dates: start: 20210921, end: 20210921
  2. IPILIMUMAB [Suspect]
     Active Substance: IPILIMUMAB
     Indication: Malignant melanoma
     Dosage: 324 MILLIGRAM
     Route: 042
     Dates: start: 20210921, end: 20210921
  3. DENOSUMAB [Suspect]
     Active Substance: DENOSUMAB
     Indication: Malignant melanoma
     Dosage: 120 MILLIGRAM
     Route: 058
     Dates: start: 20210921, end: 20210921
  4. NALOXONE HYDROCHLORIDE\OXYCODONE HYDROCHLORIDE [Concomitant]
     Active Substance: NALOXONE HYDROCHLORIDE\OXYCODONE HYDROCHLORIDE
     Indication: Musculoskeletal pain
     Dosage: 15MG IN MORNING AND 20G AT NIGHT
     Route: 048
     Dates: start: 20210816
  5. NALOXONE HYDROCHLORIDE\OXYCODONE HYDROCHLORIDE [Concomitant]
     Active Substance: NALOXONE HYDROCHLORIDE\OXYCODONE HYDROCHLORIDE
     Dosage: 15/7.5 MG BID
     Route: 065
  6. OXYCODONE [Concomitant]
     Active Substance: OXYCODONE
     Indication: Musculoskeletal pain
     Dosage: 5 MILLIGRAM, QID
     Route: 048
     Dates: start: 20210816, end: 20210922
  7. OXYCODONE [Concomitant]
     Active Substance: OXYCODONE
     Dosage: 10 MILLIGRAM, QID
     Route: 048
     Dates: start: 20210922
  8. ASTRAZENECA COVID-19 VACCINE [Concomitant]
     Active Substance: AZD-1222
     Indication: Prophylaxis
     Dosage: STAT DOSE
     Route: 030
     Dates: start: 20210826
  9. PANTOPRAZOLE [Concomitant]
     Active Substance: PANTOPRAZOLE
     Indication: Abdominal pain upper
     Dosage: 20 MILLIGRAM DAILY
     Route: 048
     Dates: start: 202106
  10. ESCITALOPRAM [Concomitant]
     Active Substance: ESCITALOPRAM OXALATE
     Indication: Anxiety
     Dosage: 10 MILLIGRAM DAILY
     Route: 048
     Dates: start: 2011
  11. IRBESARTAN [Concomitant]
     Active Substance: IRBESARTAN
     Indication: Hypertension
     Dosage: 300 MILLIGRAM DAILY
     Route: 048
     Dates: start: 2011
  12. GABAPENTIN [Concomitant]
     Active Substance: GABAPENTIN
     Indication: Musculoskeletal pain
     Dosage: 300 MILLIGRAM, TID
     Route: 048
     Dates: start: 202108
  13. GABAPENTIN [Concomitant]
     Active Substance: GABAPENTIN
     Dosage: 900 MG NOCTE
     Route: 065
  14. ATORVASTATIN [Concomitant]
     Active Substance: ATORVASTATIN
     Indication: Hyperlipidaemia
     Dosage: 80 MILLIGRAM DAILY
     Route: 048
     Dates: start: 2011
  15. VENTOLIN [Concomitant]
     Active Substance: ALBUTEROL SULFATE
     Indication: Dyspnoea exertional
     Dosage: 2 PUFFS
     Route: 048
     Dates: start: 202106
  16. PANADOL [Concomitant]
     Active Substance: ACETAMINOPHEN
     Indication: Osteoarthritis
     Dosage: 1 GRAM
     Route: 048
     Dates: start: 1981
  17. CALCIUM [Concomitant]
     Active Substance: CALCIUM
     Indication: Product used for unknown indication
     Route: 065
  18. ACETAMINOPHEN [Concomitant]
     Active Substance: ACETAMINOPHEN
     Indication: Product used for unknown indication
     Route: 065

REACTIONS (1)
  - Pyrexia [Not Recovered/Not Resolved]

NARRATIVE: CASE EVENT DATE: 20210922
